FAERS Safety Report 18119500 (Version 1)
Quarter: 2020Q3

REPORT INFORMATION
  Report Type: Spontaneous
  Country: GB (occurrence: GB)
  Receive Date: 20200806
  Receipt Date: 20200806
  Transmission Date: 20201103
  Serious: Yes (Hospitalization)
  Sender: FDA-Public Use
  Company Number: GB-ALSI-202000274

PATIENT
  Age: 12 Year
  Sex: Female

DRUGS (13)
  1. METOCLOPRAMIDE. [Concomitant]
     Active Substance: METOCLOPRAMIDE
  2. CLARITHROMYCIN. [Concomitant]
     Active Substance: CLARITHROMYCIN
  3. POSACONAZOLE [Concomitant]
     Active Substance: POSACONAZOLE
  4. CASPOFUNGIN [Concomitant]
     Active Substance: CASPOFUNGIN
  5. VINCRISTINE [Concomitant]
     Active Substance: VINCRISTINE
  6. SULPHAMETHOXAZOLE; TRIMETHOPRIM [Concomitant]
  7. LEVOMEPROMAZINE [Concomitant]
     Active Substance: LEVOMEPROMAZINE
  8. VALACICLOVIR [Concomitant]
     Active Substance: VALACYCLOVIR HYDROCHLORIDE
  9. METHOTREXATE. [Suspect]
     Active Substance: METHOTREXATE
     Indication: ACUTE LEUKAEMIA IN REMISSION
     Route: 037
     Dates: start: 20150128, end: 20150128
  10. AMILORIDE [Concomitant]
     Active Substance: AMILORIDE
  11. NITROUS OXIDE. [Suspect]
     Active Substance: NITROUS OXIDE
     Route: 055
     Dates: start: 20150128, end: 20150128
  12. DEXAMETHASONE. [Concomitant]
     Active Substance: DEXAMETHASONE
  13. ONDANSETRON [Concomitant]
     Active Substance: ONDANSETRON

REACTIONS (9)
  - Leukoencephalopathy [Recovered/Resolved with Sequelae]
  - Partial seizures with secondary generalisation [Recovered/Resolved with Sequelae]
  - Brain oedema [Recovered/Resolved with Sequelae]
  - Disinhibition [Recovered/Resolved with Sequelae]
  - Muscular weakness [Recovering/Resolving]
  - Agitation [Recovered/Resolved with Sequelae]
  - Somnolence [Recovered/Resolved with Sequelae]
  - Vitamin B12 decreased [Recovered/Resolved]
  - Neurological symptom [Recovered/Resolved with Sequelae]
